FAERS Safety Report 15160723 (Version 2)
Quarter: 2018Q3

REPORT INFORMATION
  Report Type: Spontaneous
  Country: GR (occurrence: GR)
  Receive Date: 20180718
  Receipt Date: 20180724
  Transmission Date: 20181010
  Serious: Yes (Hospitalization, Other)
  Sender: FDA-Public Use
  Company Number: GR-009507513-1807GRC006398

PATIENT
  Age: 47 Year
  Sex: Male

DRUGS (1)
  1. ZERBAXA [Suspect]
     Active Substance: CEFTOLOZANE SULFATE\TAZOBACTAM SODIUM
     Dosage: UNK

REACTIONS (8)
  - Bone marrow failure [Unknown]
  - Multiple injuries [Unknown]
  - Sepsis [Unknown]
  - Renal failure [Unknown]
  - Pulmonary contusion [Unknown]
  - Road traffic accident [Unknown]
  - Thrombocytopenia [Unknown]
  - Respiratory failure [Unknown]
